FAERS Safety Report 24112278 (Version 1)
Quarter: 2024Q3

REPORT INFORMATION
  Report Type: Report from Study
  Country: GB (occurrence: None)
  Receive Date: 20240719
  Receipt Date: 20240719
  Transmission Date: 20241017
  Serious: Yes (Hospitalization)
  Sender: ASTRAZENECA
  Company Number: 2020SF26278

PATIENT
  Sex: Female

DRUGS (1)
  1. FASENRA [Suspect]
     Active Substance: BENRALIZUMAB
     Indication: Protein total
     Dosage: 30.0MG UNKNOWN
     Route: 058

REACTIONS (2)
  - Cellulitis [Unknown]
  - Chest scan abnormal [Unknown]
